FAERS Safety Report 11588182 (Version 3)
Quarter: 2015Q4

REPORT INFORMATION
  Report Type: Report from Study
  Country: US (occurrence: US)
  Receive Date: 20151002
  Receipt Date: 20151107
  Transmission Date: 20160304
  Serious: Yes (Hospitalization, Other)
  Sender: FDA-Public Use
  Company Number: US-AMGEN-USASP2015100919

PATIENT
  Sex: Female

DRUGS (1)
  1. ENBREL [Suspect]
     Active Substance: ETANERCEPT
     Indication: RHEUMATOID ARTHRITIS
     Dosage: UNK UNK, QWK
     Route: 065

REACTIONS (10)
  - Pain [Unknown]
  - Weight fluctuation [Unknown]
  - Confusional state [Unknown]
  - Memory impairment [Unknown]
  - Haemoglobin decreased [Unknown]
  - Hypophagia [Unknown]
  - Syncope [Unknown]
  - Malaise [Unknown]
  - Depression [Unknown]
  - Pyrexia [Unknown]
